FAERS Safety Report 13619419 (Version 1)
Quarter: 2017Q2

REPORT INFORMATION
  Report Type: Spontaneous
  Country: US (occurrence: US)
  Receive Date: 20170606
  Receipt Date: 20170606
  Transmission Date: 20170830
  Serious: No
  Sender: FDA-Public Use
  Company Number: US-AMGEN-USASP2017014511

PATIENT
  Age: 73 Year
  Sex: Female
  Weight: 58.5 kg

DRUGS (1)
  1. PROCRIT [Suspect]
     Active Substance: ERYTHROPOIETIN
     Indication: NEOPLASM MALIGNANT
     Dosage: 40000 UNITS/ML, QWK
     Route: 058
     Dates: start: 20170117

REACTIONS (2)
  - Incorrect product storage [Unknown]
  - Off label use [Unknown]

NARRATIVE: CASE EVENT DATE: 201701
